FAERS Safety Report 19237382 (Version 1)
Quarter: 2021Q2

REPORT INFORMATION
  Report Type: Spontaneous
  Country: US (occurrence: US)
  Receive Date: 20210510
  Receipt Date: 20210510
  Transmission Date: 20210717
  Serious: Yes (Other)
  Sender: FDA-Public Use
  Company Number: None

PATIENT
  Age: 70 Year
  Sex: Male
  Weight: 94.5 kg

DRUGS (18)
  1. BYDUREON [Concomitant]
     Active Substance: EXENATIDE
  2. LOPERAMIDE [Concomitant]
     Active Substance: LOPERAMIDE
  3. TAMSULOSIN [Concomitant]
     Active Substance: TAMSULOSIN
  4. FAMOTIDINE. [Concomitant]
     Active Substance: FAMOTIDINE
  5. POTASSIUM [Concomitant]
     Active Substance: POTASSIUM
  6. TYLENOL [Concomitant]
     Active Substance: ACETAMINOPHEN
  7. SYNJARDY [Concomitant]
     Active Substance: EMPAGLIFLOZIN\METFORMIN HYDROCHLORIDE
  8. HEALTH IMMUNE [Concomitant]
  9. HAIR, SKIN + NAILS [Concomitant]
     Active Substance: MINERALS\VITAMINS
  10. BASAGLAR [Concomitant]
     Active Substance: INSULIN GLARGINE
  11. MELATONIN [Concomitant]
     Active Substance: MELATONIN
  12. ATORVASTATIN [Concomitant]
     Active Substance: ATORVASTATIN
  13. DICYCOMINE [Concomitant]
  14. FINASTERIDE. [Concomitant]
     Active Substance: FINASTERIDE
  15. FLUOROURACIL CREAM [Suspect]
     Active Substance: FLUOROURACIL
     Indication: ACNE
     Dosage: ?          QUANTITY:2 APPLICATIONS;?
     Route: 061
     Dates: start: 20210507, end: 20210509
  16. FENOFIBRATE. [Concomitant]
     Active Substance: FENOFIBRATE
  17. LOSARTAN. [Concomitant]
     Active Substance: LOSARTAN
  18. BUPROPRION [Concomitant]
     Active Substance: BUPROPION

REACTIONS (3)
  - Erythema [None]
  - Pruritus [None]
  - Rash [None]

NARRATIVE: CASE EVENT DATE: 20210509
